FAERS Safety Report 4830907-2 (Version None)
Quarter: 2005Q4

REPORT INFORMATION
  Report Type: 
  Country: None (occurrence: None)
  Receive Date: 20051114
  Receipt Date: 20051102
  Transmission Date: 20060501
  Serious: Yes (Hospitalization, Other)
  Sender: FDA-Public Use
  Company Number: AU_051109089

PATIENT
  Sex: Female

DRUGS (3)
  1. FORTEO [Suspect]
     Dates: start: 20050101, end: 20050101
  2. CALCIUM GLUCONATE [Concomitant]
  3. VITAMIN D [Concomitant]

REACTIONS (5)
  - FALL [None]
  - HIP FRACTURE [None]
  - HYPERCALCAEMIA [None]
  - MULTIPLE MYELOMA [None]
  - PAIN [None]
